FAERS Safety Report 9007964 (Version 3)
Quarter: 2013Q2

REPORT INFORMATION
  Report Type: Spontaneous
  Country: DK (occurrence: DK)
  Receive Date: 20130111
  Receipt Date: 20130605
  Transmission Date: 20140414
  Serious: Yes (Disabling)
  Sender: FDA-Public Use
  Company Number: DK-SANOFI-AVENTIS-2012SA090181

PATIENT
  Age: 72 Year
  Sex: Male

DRUGS (7)
  1. PLAVIX [Suspect]
     Indication: THROMBOSIS PROPHYLAXIS
     Route: 065
     Dates: start: 201008, end: 20100902
  2. PLAVIX [Suspect]
     Indication: THROMBOSIS PROPHYLAXIS
     Dates: start: 201009
  3. WARFARIN [Concomitant]
     Dates: start: 20010901, end: 20020103
  4. WARFARIN [Concomitant]
     Dates: start: 20050109
  5. MAGNYL ^SAD^ [Concomitant]
     Indication: CORONARY ARTERY DISEASE
     Dates: start: 200109
  6. CORDARONE [Concomitant]
     Dates: start: 20090919
  7. CORDARONE [Concomitant]
     Dates: start: 20091006

REACTIONS (7)
  - Spinal haematoma [Recovered/Resolved]
  - Diplegia [Not Recovered/Not Resolved]
  - Urinary incontinence [Not Recovered/Not Resolved]
  - Faecal incontinence [Not Recovered/Not Resolved]
  - Sensory disturbance [Unknown]
  - Hypoaesthesia [Unknown]
  - Back pain [Unknown]
